FAERS Safety Report 6310363-8 (Version None)
Quarter: 2009Q3

REPORT INFORMATION
  Report Type: 
  Country: None (occurrence: None)
  Receive Date: 20090811
  Receipt Date: 20090805
  Transmission Date: 20100115
  Serious: Yes (Disabling)
  Sender: FDA-Public Use
  Company Number: 344206

PATIENT
  Sex: Male

DRUGS (1)
  1. BUPIVACAINE HCL INJ USP (MARCAINE) [Suspect]
     Indication: PAIN MANAGEMENT
     Dates: start: 20070101, end: 20070101

REACTIONS (5)
  - ACTIVITIES OF DAILY LIVING IMPAIRED [None]
  - ARTHROPATHY [None]
  - CATHETER SITE RELATED REACTION [None]
  - JOINT INJURY [None]
  - MUSCULOSKELETAL DISORDER [None]
